FAERS Safety Report 4840390-9 (Version None)
Quarter: 2005Q4

REPORT INFORMATION
  Report Type: 
  Country: None (occurrence: None)
  Receive Date: 20051019
  Receipt Date: 20050118
  Transmission Date: 20060501
  Serious: Yes (Hospitalization)
  Sender: FDA-Public Use
  Company Number: WAES 0501USA02878

PATIENT
  Age: 80 Year
  Sex: Female

DRUGS (1)
  1. TIMOPTIC [Suspect]
     Dosage: OPHT
     Route: 047

REACTIONS (1)
  - BRADYCARDIA [None]
